FAERS Safety Report 17923277 (Version 1)
Quarter: 2020Q2

REPORT INFORMATION
  Report Type: Spontaneous
  Country: CA (occurrence: CA)
  Receive Date: 20200622
  Receipt Date: 20200622
  Transmission Date: 20200714
  Serious: Yes (Other)
  Sender: FDA-Public Use
  Company Number: CA-ACCORD-185758

PATIENT
  Age: 70 Year
  Sex: Male

DRUGS (8)
  1. ROSUVASTATIN. [Concomitant]
     Active Substance: ROSUVASTATIN
  2. PREDNISONE. [Concomitant]
     Active Substance: PREDNISONE
  3. CARVEDILOL/CARVEDILOL HYDROCHLODRIDE [Concomitant]
     Active Substance: CARVEDILOL HYDROCHLORIDE
  4. TAMSULOSIN/TAMSULOSIN HYDROCHLORIDE [Concomitant]
     Active Substance: TAMSULOSIN HYDROCHLORIDE
  5. ACETYLSALICYLIC ACID [Concomitant]
     Active Substance: ASPIRIN
  6. AMLODIPINE [Suspect]
     Active Substance: AMLODIPINE BESYLATE
     Indication: PRODUCT USED FOR UNKNOWN INDICATION
  7. CHLORTALIDONE [Concomitant]
     Active Substance: CHLORTHALIDONE
  8. IRON [Concomitant]
     Active Substance: IRON

REACTIONS (6)
  - Asthenia [Unknown]
  - Myocardial infarction [Unknown]
  - Frequent bowel movements [Unknown]
  - Haematochezia [Unknown]
  - Diabetes mellitus [Unknown]
  - Fatigue [Unknown]
